FAERS Safety Report 10055727 (Version 1)
Quarter: 2014Q2

REPORT INFORMATION
  Report Type: Spontaneous
  Country: US (occurrence: US)
  Receive Date: 20140403
  Receipt Date: 20140403
  Transmission Date: 20141212
  Serious: Yes (Other)
  Sender: FDA-Public Use
  Company Number: US-AMGEN INC.-USASP2014022928

PATIENT
  Age: 27 Year
  Sex: Male

DRUGS (3)
  1. NEUPOGEN [Suspect]
     Indication: PRODUCT USED FOR UNKNOWN INDICATION
     Dosage: UNK UNK, AS NECESSARY
     Route: 065
     Dates: start: 2013
  2. PEGASYS [Concomitant]
     Dosage: UNK
  3. SOFOSBUVIR [Concomitant]
     Dosage: UNK

REACTIONS (1)
  - Neutrophil count decreased [Unknown]
